FAERS Safety Report 6443758 (Version 2)
Quarter: 2012Q4

REPORT INFORMATION
  Report Type: Spontaneous
  Country: GR (occurrence: None)
  Receive Date: 20071005
  Receipt Date: 20121025
  Transmission Date: 20130627
  Serious: Yes (Death, Hospitalization, Disabling, Other)
  Sender: FDA-Public Use
  Company Number: 2007001751

PATIENT
  Age: 65 Year
  Sex: Female

DRUGS (1)
  1. TARCEVA (ERLOTINIB HYDROCHLORIDE) TABLET [Suspect]
     Indication: PANCREATIC CARCINOMA
     Dosage: uid/qd
     Route: 048
     Dates: start: 20070830, end: 20070911

REACTIONS (14)
  - Ototoxicity [None]
  - Vertigo [None]
  - Deafness neurosensory [None]
  - Hearing impaired [None]
  - Incorrect dose administered [None]
  - Pancreatic carcinoma [None]
  - Malignant neoplasm progression [None]
  - Metastases to lung [None]
  - Metastases to bone [None]
  - Tinnitus [None]
  - Communication disorder [None]
  - Activities of daily living impaired [None]
  - Quality of life decreased [None]
  - Mobility decreased [None]
